FAERS Safety Report 17963543 (Version 1)
Quarter: 2020Q2

REPORT INFORMATION
  Report Type: Spontaneous
  Country: FR (occurrence: FR)
  Receive Date: 20200630
  Receipt Date: 20200630
  Transmission Date: 20200714
  Serious: Yes (Hospitalization)
  Sender: FDA-Public Use
  Company Number: FR-PFIZER INC-2020247479

PATIENT
  Age: 61 Year
  Sex: Female
  Weight: 61 kg

DRUGS (17)
  1. EPIRUBICIN HCL [Suspect]
     Active Substance: EPIRUBICIN HYDROCHLORIDE
     Indication: BREAST CANCER
     Dosage: 830 MG, CYCLIC
     Route: 042
     Dates: start: 20200527, end: 20200527
  2. PROPRANOLOL [Concomitant]
     Active Substance: PROPRANOLOL HYDROCHLORIDE
     Dosage: UNK
  3. ASPEGIC [ACETYLSALICYLATE LYSINE] [Concomitant]
     Active Substance: ASPIRIN DL-LYSINE
     Dosage: UNK
  4. SOLU-MEDROL [Suspect]
     Active Substance: METHYLPREDNISOLONE SODIUM SUCCINATE
     Indication: CHEMOTHERAPY SIDE EFFECT PROPHYLAXIS
     Dosage: 80 MG, CYCLIC
     Route: 042
     Dates: start: 20200527, end: 20200527
  5. FORLAX [Suspect]
     Active Substance: POLYETHYLENE GLYCOL 4000
     Indication: CHEMOTHERAPY SIDE EFFECT PROPHYLAXIS
     Dosage: UNK, AS NEEDED
     Route: 048
  6. PRIMPERAN [Concomitant]
     Active Substance: METOCLOPRAMIDE HYDROCHLORIDE
     Dosage: UNK
  7. TIORFAN [Concomitant]
     Active Substance: RACECADOTRIL
     Dosage: UNK
  8. DOMPERIDONE [Concomitant]
     Active Substance: DOMPERIDONE
     Dosage: UNK
  9. CYCLOPHOSPHAMIDE. [Suspect]
     Active Substance: CYCLOPHOSPHAMIDE
     Indication: BREAST CANCER
     Dosage: 160 MG, CYCLIC
     Route: 042
     Dates: start: 20200527, end: 20200527
  10. EMLA [Concomitant]
     Active Substance: LIDOCAINE\PRILOCAINE
     Dosage: UNK
  11. FLUOROURACIL. [Suspect]
     Active Substance: FLUOROURACIL
     Indication: BREAST CANCER
     Dosage: 830 MG, CYCLIC
     Route: 042
     Dates: start: 20200527, end: 20200527
  12. ONDANSETRON [Suspect]
     Active Substance: ONDANSETRON
     Indication: CHEMOTHERAPY SIDE EFFECT PROPHYLAXIS
     Dosage: 8 MG, 1X/DAY
     Route: 042
     Dates: start: 20200527, end: 20200528
  13. LANSOYL [Concomitant]
     Active Substance: MINERAL OIL
     Dosage: UNK
  14. DEXERYL [GLYCEROL;PARAFFIN, LIQUID;WHITE SOFT PARAFFIN] [Concomitant]
     Active Substance: GLYCERIN\MINERAL OIL\PETROLATUM
     Dosage: UNK
  15. ZESTORETIC [Suspect]
     Active Substance: HYDROCHLOROTHIAZIDE\LISINOPRIL
     Indication: HYPERTENSION
     Dosage: 1 DF, 1X/DAY
     Route: 048
     Dates: end: 20200609
  16. EMEND [Suspect]
     Active Substance: APREPITANT
     Indication: CHEMOTHERAPY SIDE EFFECT PROPHYLAXIS
     Dosage: 125 MG, 1X/DAY
     Route: 048
     Dates: start: 20200527, end: 20200530
  17. SMECTA [Concomitant]
     Active Substance: MONTMORILLONITE
     Dosage: UNK

REACTIONS (5)
  - Loss of consciousness [Recovered/Resolved]
  - Seizure [Recovered/Resolved]
  - Fall [Recovered/Resolved]
  - Confusional state [Recovered/Resolved]
  - Hyponatraemia [Recovered/Resolved]

NARRATIVE: CASE EVENT DATE: 20200529
